FAERS Safety Report 10199182 (Version 1)
Quarter: 2014Q2

REPORT INFORMATION
  Report Type: Spontaneous
  Country: KR (occurrence: KR)
  Receive Date: 20140527
  Receipt Date: 20140527
  Transmission Date: 20141212
  Serious: Yes (Death, Other)
  Sender: FDA-Public Use
  Company Number: KR-SA-2014SA064618

PATIENT
  Age: 59 Year
  Sex: Male

DRUGS (13)
  1. ELOXATIN [Suspect]
     Indication: COLON CANCER
     Dosage: CYCLE 1 AND 2
     Route: 065
  2. ELOXATIN [Suspect]
     Indication: COLON CANCER
     Route: 065
  3. ELOXATIN [Suspect]
     Indication: COLON CANCER
     Route: 065
  4. FLUOROURACIL [Suspect]
     Indication: COLON CANCER
     Route: 065
  5. FLUOROURACIL [Suspect]
     Indication: COLON CANCER
     Route: 065
  6. FLUOROURACIL [Suspect]
     Indication: COLON CANCER
     Dosage: CYCLE 1 AND 2
     Route: 065
  7. FLUOROURACIL [Suspect]
     Indication: COLON CANCER
     Route: 065
  8. LEUCOVORIN [Suspect]
     Indication: COLON CANCER
     Route: 065
  9. LEUCOVORIN [Suspect]
     Indication: COLON CANCER
     Route: 065
  10. LEUCOVORIN [Suspect]
     Indication: COLON CANCER
     Dosage: CYCLE 1 AND 2
     Route: 065
  11. LEUCOVORIN [Suspect]
     Indication: COLON CANCER
     Route: 065
  12. IRINOTECAN [Concomitant]
     Indication: COLON CANCER
  13. BEVACIZUMAB [Concomitant]
     Indication: COLON CANCER

REACTIONS (8)
  - Tumour lysis syndrome [Fatal]
  - Blood creatinine increased [Fatal]
  - Blood calcium decreased [Fatal]
  - Blood phosphorus increased [Fatal]
  - Blood uric acid increased [Fatal]
  - Blood lactate dehydrogenase increased [Fatal]
  - Blood urea increased [Fatal]
  - Hyperbilirubinaemia [Unknown]
